FAERS Safety Report 7676562-8 (Version None)
Quarter: 2011Q3

REPORT INFORMATION
  Report Type: 
  Country: None (occurrence: None)
  Receive Date: 20110811
  Receipt Date: 20110801
  Transmission Date: 20111222
  Serious: Yes (Other)
  Sender: FDA-Public Use
  Company Number: US-JNJFOC-20110802310

PATIENT
  Age: 21 Year
  Sex: Female

DRUGS (5)
  1. INVEGA SUSTENNA [Suspect]
     Indication: BIPOLAR I DISORDER
     Route: 030
     Dates: start: 20110701
  2. DEPAKOTE [Concomitant]
     Route: 048
  3. RISPERDAL CONSTA [Suspect]
     Indication: BIPOLAR I DISORDER
     Route: 030
     Dates: end: 20110701
  4. COGENTIN [Concomitant]
     Route: 048
  5. EFFEXOR [Concomitant]
     Route: 048

REACTIONS (2)
  - HALLUCINATION, AUDITORY [None]
  - SUICIDE ATTEMPT [None]
